FAERS Safety Report 4926357-0 (Version None)
Quarter: 2006Q1

REPORT INFORMATION
  Report Type: 
  Country: None (occurrence: None)
  Receive Date: 20060228
  Receipt Date: 20051104
  Transmission Date: 20060701
  Serious: Yes (Other)
  Sender: FDA-Public Use
  Company Number: US-GLAXOSMITHKLINE-A0580923A

PATIENT
  Age: 45 Year
  Sex: Female

DRUGS (2)
  1. LAMICTAL [Suspect]
     Indication: BIPOLAR II DISORDER
     Dosage: 12.5MG PER DAY
     Route: 048
     Dates: start: 20051001
  2. WELLBUTRIN XL [Concomitant]
     Indication: DEPRESSION
     Dosage: 450MG PER DAY
     Dates: start: 20040101

REACTIONS (2)
  - PHARYNGOLARYNGEAL PAIN [None]
  - RASH [None]
